FAERS Safety Report 12383589 (Version 1)
Quarter: 2016Q2

REPORT INFORMATION
  Report Type: Spontaneous
  Country: US (occurrence: US)
  Receive Date: 20160518
  Receipt Date: 20160518
  Transmission Date: 20160815
  Serious: No
  Sender: FDA-Public Use
  Company Number: US-009507513-1605USA008570

PATIENT
  Age: 39 Year
  Sex: Female

DRUGS (4)
  1. WARFARIN [Suspect]
     Active Substance: WARFARIN
     Indication: HYPOALBUMINAEMIA
  2. TORSEMIDE. [Suspect]
     Active Substance: TORSEMIDE
     Indication: HYPERTENSION
  3. ZOCOR [Suspect]
     Active Substance: SIMVASTATIN
     Route: 048
  4. PRINIVIL [Suspect]
     Active Substance: LISINOPRIL
     Dosage: 40 MG, BID
     Route: 048

REACTIONS (2)
  - Exposure during pregnancy [Recovered/Resolved]
  - No therapeutic response [Unknown]
